FAERS Safety Report 5326460-X (Version None)
Quarter: 2007Q2

REPORT INFORMATION
  Report Type: 
  Country: None (occurrence: None)
  Receive Date: 20070516
  Receipt Date: 20070228
  Transmission Date: 20071010
  Serious: Yes (Hospitalization)
  Sender: FDA-Public Use
  Company Number: US-ROCHE-458996

PATIENT
  Age: 61 Year
  Sex: Female
  Weight: 62.1 kg

DRUGS (9)
  1. PEG-INTERFERON ALFA 2A (RO 25-8310) [Suspect]
     Indication: HEPATITIS C
     Dosage: DATE OF LAST DOSE PRIOR TO SAE WAS REPORTED AS 19 JULY 2006
     Route: 058
     Dates: start: 20050831, end: 20060720
  2. RIBAVIRIN [Suspect]
     Indication: HEPATITIS C
     Dosage: DATE OF LAST DOSE PRIOR TO SAE WAS REPORTED AS 19 JULY 2006
     Route: 048
     Dates: start: 20050831, end: 20060720
  3. BETOPTIC [Concomitant]
  4. RESTASIS [Concomitant]
     Dates: start: 20060201
  5. PREMARIN [Concomitant]
     Dates: start: 20030101
  6. PRILOSEC [Concomitant]
     Dates: start: 20050501
  7. MAGNESIUM PLUS [Concomitant]
     Dates: start: 20050501
  8. MULTIVITAMIN NOS [Concomitant]
     Dates: start: 20040101
  9. PROGRAF [Concomitant]
     Dates: start: 20060606

REACTIONS (4)
  - HAEMOGLOBIN DECREASED [None]
  - HAEMORRHOIDAL HAEMORRHAGE [None]
  - PLATELET COUNT DECREASED [None]
  - RED BLOOD CELL COUNT DECREASED [None]
